FAERS Safety Report 9786541 (Version 1)
Quarter: 2013Q4

REPORT INFORMATION
  Report Type: Spontaneous
  Country: US (occurrence: US)
  Receive Date: 20131227
  Receipt Date: 20131227
  Transmission Date: 20140711
  Serious: No
  Sender: FDA-Public Use
  Company Number: US-TEVA-451335USA

PATIENT
  Age: 75 Year
  Sex: Female
  Weight: 47.22 kg

DRUGS (9)
  1. AZILECT [Suspect]
     Indication: PARKINSON^S DISEASE
     Dates: start: 201312
  2. CARBIDOPA [Concomitant]
     Indication: PARKINSON^S DISEASE
     Dosage: TID
  3. LOPRESSOR [Concomitant]
     Indication: HYPERTENSION
  4. GLYBURIDE [Concomitant]
     Indication: DIABETES MELLITUS
  5. LOVASTATIN [Concomitant]
  6. AMANTADINE [Concomitant]
     Indication: PARKINSON^S DISEASE
  7. SEROQUEL [Concomitant]
  8. CALCIUM [Concomitant]
  9. VITAMINS [Concomitant]

REACTIONS (1)
  - Movement disorder [Not Recovered/Not Resolved]
